FAERS Safety Report 7723987-8 (Version None)
Quarter: 2011Q3

REPORT INFORMATION
  Report Type: 
  Country: None (occurrence: None)
  Receive Date: 20110901
  Receipt Date: 20110824
  Transmission Date: 20111222
  Serious: Yes (Hospitalization, Other)
  Sender: FDA-Public Use
  Company Number: US-ACTELION-A-US2011-48792

PATIENT

DRUGS (5)
  1. TRACLEER [Suspect]
     Indication: PULMONARY HYPERTENSION
     Dosage: 62.5 MG, BID
     Route: 048
     Dates: start: 20101028, end: 20101123
  2. TRACLEER [Suspect]
     Dosage: 125 MG, BID
     Route: 048
     Dates: start: 20101124
  3. COUMADIN [Concomitant]
  4. OXYGEN [Concomitant]
  5. REVATIO [Concomitant]

REACTIONS (5)
  - CHRONIC RESPIRATORY FAILURE [None]
  - IMPLANTABLE PLEURAL CATHETER INSERTION [None]
  - PERICARDIAL EFFUSION [None]
  - OSTEOMYELITIS [None]
  - PLEURAL EFFUSION [None]
